FAERS Safety Report 14090749 (Version 2)
Quarter: 2017Q4

REPORT INFORMATION
  Report Type: Report from Study
  Country: US (occurrence: US)
  Receive Date: 20171015
  Receipt Date: 20171226
  Transmission Date: 20180321
  Serious: Yes (Hospitalization, Other)
  Sender: FDA-Public Use
  Company Number: US-TESARO, INC.-US-2017TSO03217

PATIENT

DRUGS (2)
  1. ZEJULA [Suspect]
     Active Substance: NIRAPARIB
     Indication: OVARIAN CANCER
     Dosage: 300 MG, QD
     Route: 048
     Dates: start: 20170912, end: 20170914
  2. ZEJULA [Suspect]
     Active Substance: NIRAPARIB
     Dosage: 300 MG, QD
     Route: 048
     Dates: start: 20170920

REACTIONS (11)
  - Device related infection [Not Recovered/Not Resolved]
  - Treatment noncompliance [Recovered/Resolved]
  - Carbohydrate antigen 125 increased [Not Recovered/Not Resolved]
  - Urinary tract infection [Unknown]
  - Intestinal obstruction [Unknown]
  - Bedridden [Not Recovered/Not Resolved]
  - Dysphagia [Not Recovered/Not Resolved]
  - Disease progression [Unknown]
  - Parenteral nutrition [Unknown]
  - Product quality issue [Unknown]
  - Heart rate increased [Unknown]

NARRATIVE: CASE EVENT DATE: 201709
